FAERS Safety Report 8035542-3 (Version None)
Quarter: 2012Q1

REPORT INFORMATION
  Report Type: 
  Country: None (occurrence: None)
  Receive Date: 20120110
  Receipt Date: 20120110
  Transmission Date: 20120608
  Serious: Yes (Other)
  Sender: FDA-Public Use
  Company Number: None

PATIENT
  Age: 79 Year
  Sex: Female
  Weight: 65.7716 kg

DRUGS (1)
  1. TERBENAFINE [Suspect]
     Indication: SKIN DISORDER
     Dosage: 250 MG DAILY ORAL
     Route: 048
     Dates: start: 20111028

REACTIONS (2)
  - URTICARIA [None]
  - RASH PRURITIC [None]
